FAERS Safety Report 10219047 (Version 2)
Quarter: 2014Q3

REPORT INFORMATION
  Report Type: Spontaneous
  Country: JP (occurrence: JP)
  Receive Date: 20140605
  Receipt Date: 20140709
  Transmission Date: 20150326
  Serious: Yes (Other)
  Sender: FDA-Public Use
  Company Number: PHJP2014JP000826

PATIENT
  Age: 15 Year
  Sex: Male

DRUGS (1)
  1. TEGRETOL [Suspect]
     Active Substance: CARBAMAZEPINE
     Indication: DYSKINESIA
     Dosage: UNK UKN, UNK
     Route: 048

REACTIONS (7)
  - Hypoaesthesia [Unknown]
  - Spinal cord disorder [Unknown]
  - Monomelic amyotrophy [Unknown]
  - Muscular weakness [Unknown]
  - Grip strength decreased [Unknown]
  - Nerve conduction studies abnormal [Unknown]
  - Condition aggravated [Unknown]
